FAERS Safety Report 4665074-1 (Version None)
Quarter: 2005Q2

REPORT INFORMATION
  Report Type: 
  Country: None (occurrence: None)
  Receive Date: 20050517
  Receipt Date: 20050502
  Transmission Date: 20051028
  Serious: Yes (Hospitalization, Other)
  Sender: FDA-Public Use
  Company Number: FR_050506348

PATIENT
  Age: 23 Year
  Sex: Female

DRUGS (4)
  1. ZYPREXA [Suspect]
     Dosage: 20 MG/1 DAY
     Dates: start: 20011109
  2. NOZINAN (LEVOMEPROMAZINE) [Concomitant]
  3. LORAZEPAM [Concomitant]
  4. ANAFRANIL [Concomitant]

REACTIONS (6)
  - DRUG EXPOSURE DURING PREGNANCY [None]
  - FOOT FRACTURE [None]
  - GRAND MAL CONVULSION [None]
  - PELVIC FRACTURE [None]
  - PREGNANCY [None]
  - SUICIDE ATTEMPT [None]
